FAERS Safety Report 5878677-3 (Version None)
Quarter: 2008Q3

REPORT INFORMATION
  Report Type: 
  Country: None (occurrence: None)
  Receive Date: 20080912
  Receipt Date: 20080911
  Transmission Date: 20090109
  Serious: Yes (Death)
  Sender: FDA-Public Use
  Company Number: CN-BAYER-200826023GPV

PATIENT
  Age: 55 Year
  Sex: Female
  Weight: 54 kg

DRUGS (2)
  1. NEXAVAR [Suspect]
     Indication: RENAL CELL CARCINOMA
     Dosage: TOTAL DAILY DOSE: 800 MG
     Route: 048
     Dates: start: 20080614, end: 20080804
  2. IFN ALPHA [Concomitant]
     Indication: RENAL CELL CARCINOMA
     Route: 058
     Dates: start: 20080614, end: 20080804

REACTIONS (2)
  - PNEUMONIA [None]
  - PYREXIA [None]
